FAERS Safety Report 10309075 (Version 3)
Quarter: 2014Q4

REPORT INFORMATION
  Report Type: Spontaneous
  Country: US (occurrence: None)
  Receive Date: 20140714
  Receipt Date: 20141117
  Transmission Date: 20150528
  Serious: Yes (Hospitalization)
  Sender: FDA-Public Use
  Company Number: 2014-US-006366

PATIENT
  Age: 32 Year
  Sex: Female

DRUGS (8)
  1. LIDOCAINE/STEROID (LIDOCAINE HYDROCHLORIDE/STEROID) [Concomitant]
  2. CORTISONE ACETATE (CORTISONE ACETATE) [Concomitant]
  3. FIORICET (BUTALBITAL, CAFFEINE, PARACETAMOL) [Concomitant]
  4. ADDERALL XR (AMFETAMINE ASPARTATE, AMFETAMINE SULFATE, DEXAMFETAMINE SACCHARATE, DEXAMFETAMINE SULFATE) [Concomitant]
  5. ADDERALL [Concomitant]
     Active Substance: AMPHETAMINE ASPARTATE\AMPHETAMINE SULFATE\DEXTROAMPHETAMINE SACCHARATE\DEXTROAMPHETAMINE SULFATE
  6. LORATADINE (LORATADINE) (LORATADINE) [Concomitant]
     Active Substance: LORATADINE
  7. PROPRANOLOL (PROPRANOLOL HYDROCHLORIDE) [Concomitant]
  8. XYREM [Suspect]
     Active Substance: SODIUM OXYBATE
     Indication: NARCOLEPSY
     Route: 048
     Dates: start: 201402, end: 2014

REACTIONS (10)
  - Nocturia [None]
  - Wrist surgery [None]
  - Kidney infection [None]
  - Ovarian cyst [None]
  - Inflammation [None]
  - Headache [None]
  - Pain [None]
  - Urinary tract infection [None]
  - Night sweats [None]
  - Procedural pain [None]

NARRATIVE: CASE EVENT DATE: 20140514
